FAERS Safety Report 4706104-8 (Version None)
Quarter: 2005Q2

REPORT INFORMATION
  Report Type: 
  Country: None (occurrence: None)
  Receive Date: 20050627
  Receipt Date: 20041028
  Transmission Date: 20051028
  Serious: Yes (Other)
  Sender: FDA-Public Use
  Company Number: US-JNJFOC-20041008629

PATIENT
  Sex: Female
  Weight: 50.8029 kg

DRUGS (7)
  1. FENTANYL [Suspect]
     Indication: PAIN
     Dosage: 50 UG/HR, 1 IN 72 HOUR, TRANSDERMAL; 75 UG/HR, 1 IN 72 HOUR, TRANSDERMAL; 100 UG/HR, 1 IN 72 HOUR,
     Route: 062
     Dates: start: 20040201, end: 20040401
  2. FENTANYL [Suspect]
     Indication: PAIN
     Dosage: 50 UG/HR, 1 IN 72 HOUR, TRANSDERMAL; 75 UG/HR, 1 IN 72 HOUR, TRANSDERMAL; 100 UG/HR, 1 IN 72 HOUR,
     Route: 062
     Dates: start: 20040401, end: 20040701
  3. FENTANYL [Suspect]
     Indication: PAIN
     Dosage: 50 UG/HR, 1 IN 72 HOUR, TRANSDERMAL; 75 UG/HR, 1 IN 72 HOUR, TRANSDERMAL; 100 UG/HR, 1 IN 72 HOUR,
     Route: 062
     Dates: start: 20040701
  4. NITROPATCH (GLYCERYL TRINITRATE) [Concomitant]
  5. OXYCODONE HCL [Concomitant]
  6. NEXIUM [Concomitant]
  7. CATAPRES [Concomitant]

REACTIONS (1)
  - WEIGHT DECREASED [None]
